FAERS Safety Report 7682798-2 (Version None)
Quarter: 2011Q3

REPORT INFORMATION
  Report Type: 
  Country: None (occurrence: None)
  Receive Date: 20110815
  Receipt Date: 20110804
  Transmission Date: 20111222
  Serious: Yes (Hospitalization, Other)
  Sender: FDA-Public Use
  Company Number: IT-ROCHE-729635

PATIENT
  Sex: Female
  Weight: 46 kg

DRUGS (24)
  1. FUROSEMIDE [Concomitant]
     Dates: start: 20020630
  2. VERAPAMIL [Concomitant]
  3. DIGOXIN [Concomitant]
     Dosage: TDD: 625 GU
     Dates: start: 20100702, end: 20101124
  4. PREDNISONE [Concomitant]
     Dates: start: 20100417
  5. METHOXY POLYETHYLENE GLYCOL-EPOETIN BETA [Suspect]
     Dosage: LAST DOSE PRIOR TO SAE: 16 JUNE 2010, DOSAGE FORM: PFS
     Route: 042
     Dates: start: 20100414
  6. ASPIRIN [Concomitant]
     Dates: start: 20091226
  7. CARVEDILOL [Concomitant]
     Dates: start: 20100531
  8. DARBEPOETIN ALFA [Suspect]
     Dosage: NURSE MISTAKE ON 15 DEC 2010, DARBEPOTIN ALFA (BATCH 1016812) WAS ADMINISTERED.
     Route: 065
     Dates: start: 20101215
  9. SEVELAMER [Concomitant]
     Dates: start: 20090804
  10. LANSOPRAZOLE [Concomitant]
     Dates: start: 20060630
  11. RISEDRONIC ACID [Concomitant]
     Dosage: TOTAL DOSE: 70 MG
     Dates: start: 20100122
  12. METOPROLOL TARTRATE [Concomitant]
     Dates: start: 20100702
  13. ACETAMINOPHEN [Concomitant]
     Dates: start: 20101006
  14. RISEDRONIC ACID [Concomitant]
     Dates: start: 20090804
  15. PRAVASTATIN [Concomitant]
     Dates: start: 20110112
  16. METHOXY POLYETHYLENE GLYCOL-EPOETIN BETA [Suspect]
     Dosage: LAST DOSE PRIOR TO SAE:15 NOVEMBER 2010, DOSAGE FORM: PFS
     Route: 042
  17. ATORVASTATIN CALCIUM [Concomitant]
     Dates: start: 20100517
  18. IRON GLUCONATE [Concomitant]
     Dates: start: 20100915
  19. METHOXY POLYETHYLENE GLYCOL-EPOETIN BETA [Suspect]
     Dosage: LAST DOSE PRIOR TO SAE: 14 JANUARY 2011.
     Route: 042
  20. CLOPIDOGREL [Concomitant]
     Dates: start: 20090115
  21. TELMISARTAN [Concomitant]
     Dates: start: 20100122
  22. TELMISARTAN [Concomitant]
     Dates: start: 20101203
  23. PARICALCITOL [Concomitant]
     Dosage: REPORTED AS PARACALCITOL
     Dates: start: 20100326
  24. AMLODIPINE [Concomitant]
     Dates: start: 20101227

REACTIONS (4)
  - MYOCARDIAL ISCHAEMIA [None]
  - ANGINA PECTORIS [None]
  - CHRONIC MYELOID LEUKAEMIA [None]
  - MYOCARDIAL INFARCTION [None]
